FAERS Safety Report 14240565 (Version 1)
Quarter: 2017Q4

REPORT INFORMATION
  Report Type: Spontaneous
  Country: JP (occurrence: JP)
  Receive Date: 20171130
  Receipt Date: 20171130
  Transmission Date: 20180321
  Serious: Yes (Hospitalization, Other)
  Sender: FDA-Public Use
  Company Number: JP-VIIV HEALTHCARE LIMITED-JP2017JPN182086

PATIENT
  Age: 6 Decade
  Sex: Male

DRUGS (4)
  1. NORVIR [Concomitant]
     Active Substance: RITONAVIR
     Dosage: UNK
  2. TIVICAY [Suspect]
     Active Substance: DOLUTEGRAVIR SODIUM
     Dosage: UNK
     Route: 048
     Dates: start: 2014
  3. TRUVADA [Concomitant]
     Active Substance: EMTRICITABINE\TENOFOVIR DISOPROXIL FUMARATE
     Dosage: UNK
  4. REYATAZ [Concomitant]
     Active Substance: ATAZANAVIR SULFATE
     Dosage: UNK

REACTIONS (8)
  - Treatment noncompliance [Unknown]
  - Polyneuropathy [Unknown]
  - Cataract [Unknown]
  - Hypoaesthesia [Unknown]
  - Thrombotic thrombocytopenic purpura [Unknown]
  - Dizziness [Unknown]
  - Nervous system disorder [Unknown]
  - Photophobia [Unknown]
